FAERS Safety Report 8261331-0 (Version None)
Quarter: 2012Q1

REPORT INFORMATION
  Report Type: 
  Country: None (occurrence: None)
  Receive Date: 20120327
  Receipt Date: 20110201
  Transmission Date: 20120608
  Serious: Yes (Hospitalization)
  Sender: FDA-Public Use
  Company Number: WAES 1102USA00306

PATIENT

DRUGS (1)
  1. CANCIDAS [Suspect]
     Dosage: IV
     Route: 042
     Dates: start: 20110118

REACTIONS (1)
  - LIVER FUNCTION TEST ABNORMAL [None]
